FAERS Safety Report 6451141-9 (Version None)
Quarter: 2009Q4

REPORT INFORMATION
  Report Type: 
  Country: None (occurrence: None)
  Receive Date: 20091123
  Receipt Date: 20091111
  Transmission Date: 20100525
  Serious: Yes (Other)
  Sender: FDA-Public Use
  Company Number: TW-PFIZER INC-2009291404

PATIENT
  Age: 48 Year
  Sex: Female
  Weight: 52 kg

DRUGS (2)
  1. CHAMPIX [Suspect]
     Indication: SMOKING CESSATION THERAPY
     Dosage: 1 MG, 2X/DAY
     Route: 048
     Dates: start: 20091001
  2. REDUCTIL [Concomitant]
     Indication: OBESITY
     Dosage: UNK
     Dates: start: 20090624, end: 20091015

REACTIONS (2)
  - INSOMNIA [None]
  - VOCAL CORD POLYP [None]
